FAERS Safety Report 21829922 (Version 2)
Quarter: 2023Q1

REPORT INFORMATION
  Report Type: Spontaneous
  Country: US (occurrence: US)
  Receive Date: 20230106
  Receipt Date: 20230126
  Transmission Date: 20230418
  Serious: No
  Sender: FDA-Public Use
  Company Number: US-MYLANLABS-2022M1146153

PATIENT
  Age: 79 Year
  Sex: Female
  Weight: 58.97 kg

DRUGS (1)
  1. GABAPENTIN [Suspect]
     Active Substance: GABAPENTIN
     Indication: Product used for unknown indication
     Dosage: 600 MILLIGRAM, TID, STARTED SINCE 10 YEARS
     Route: 048

REACTIONS (4)
  - Illness [Recovered/Resolved]
  - Pain [Unknown]
  - Malaise [Unknown]
  - Product taste abnormal [Recovered/Resolved]

NARRATIVE: CASE EVENT DATE: 20221201
